FAERS Safety Report 25395310 (Version 1)
Quarter: 2025Q2

REPORT INFORMATION
  Report Type: Spontaneous
  Country: US (occurrence: US)
  Receive Date: 20250604
  Receipt Date: 20250604
  Transmission Date: 20250716
  Serious: No
  Sender: MILLICENT HOLDINGS
  Company Number: US-Millicent Holdings Ltd.-MILL20250248

PATIENT
  Age: 44 Year
  Sex: Female

DRUGS (1)
  1. FEMRING [Suspect]
     Active Substance: ESTRADIOL ACETATE
     Indication: Menopausal symptoms
     Route: 067

REACTIONS (7)
  - Therapeutic product effect decreased [Recovered/Resolved]
  - Menopausal symptoms [Recovered/Resolved]
  - Fatigue [Recovered/Resolved]
  - Breast disorder female [Recovered/Resolved]
  - Hot flush [Recovered/Resolved]
  - Anxiety [Recovered/Resolved]
  - Sleep disorder [Recovered/Resolved]

NARRATIVE: CASE EVENT DATE: 20250401
